FAERS Safety Report 10189623 (Version 2)
Quarter: 2014Q2

REPORT INFORMATION
  Report Type: Spontaneous
  Country: GB (occurrence: GB)
  Receive Date: 20140522
  Receipt Date: 20140604
  Transmission Date: 20141212
  Serious: Yes (Death)
  Sender: FDA-Public Use
  Company Number: GB-GLAXOSMITHKLINE-B0995056A

PATIENT
  Age: 25 Year
  Sex: Male

DRUGS (1)
  1. REVOLADE [Suspect]

REACTIONS (2)
  - Pneumonia [Unknown]
  - Death [Fatal]
